FAERS Safety Report 9171123 (Version 1)
Quarter: 2013Q1

REPORT INFORMATION
  Report Type: Spontaneous
  Country: US (occurrence: None)
  Receive Date: 20130311
  Receipt Date: 20130311
  Transmission Date: 20140127
  Serious: Yes (Hospitalization, Other)
  Sender: FDA-Public Use
  Company Number: 2013AP003381

PATIENT
  Age: 79 Year
  Sex: Female

DRUGS (3)
  1. MIRTAZAPINE [Suspect]
     Indication: DEPRESSION
  2. DONEPEZIL HYDROCHLORIDE [Suspect]
     Indication: DEPRESSION
  3. ESZOPICLONE [Suspect]

REACTIONS (6)
  - Acute psychosis [None]
  - Confusional state [None]
  - Incoherent [None]
  - Delusion [None]
  - Encephalopathy [None]
  - Electroencephalogram abnormal [None]
